FAERS Safety Report 8836270 (Version 1)
Quarter: 2012Q4

REPORT INFORMATION
  Report Type: 
  Country: US (occurrence: US)
  Receive Date: 20121011
  Receipt Date: 20121011
  Transmission Date: 20130627
  Serious: Yes (Death, Hospitalization, Other)
  Sender: FDA-Public Use
  Company Number: PHHY2012US089844

PATIENT
  Age: 59 Year
  Sex: Male

DRUGS (2)
  1. TACROLIMUS [Suspect]
     Indication: IMMUNOSUPPRESSION
  2. PREDNISONE [Suspect]
     Indication: IMMUNOSUPPRESSION
     Dosage: 5 mg, UNK

REACTIONS (11)
  - Septic shock [Fatal]
  - Hypotension [Fatal]
  - Syncope [Fatal]
  - Pyrexia [Fatal]
  - Delirium [Fatal]
  - Mycobacterial infection [Unknown]
  - Clostridium difficile colitis [Unknown]
  - Renal failure [Unknown]
  - Rash erythematous [Unknown]
  - Papule [Unknown]
  - Scab [Unknown]
